FAERS Safety Report 14419076 (Version 10)
Quarter: 2019Q4

REPORT INFORMATION
  Report Type: Spontaneous
  Country: DE (occurrence: DE)
  Receive Date: 20180122
  Receipt Date: 20191213
  Transmission Date: 20200122
  Serious: Yes (Hospitalization, Other)
  Sender: FDA-Public Use
  Company Number: DE-BIOGEN-2018BI00512305

PATIENT
  Sex: Female

DRUGS (10)
  1. TYSABRI [Suspect]
     Active Substance: NATALIZUMAB
     Route: 050
     Dates: start: 20151019
  2. TYSABRI [Suspect]
     Active Substance: NATALIZUMAB
     Route: 050
     Dates: start: 20160307
  3. TYSABRI [Suspect]
     Active Substance: NATALIZUMAB
     Route: 050
     Dates: start: 20141111
  4. TYSABRI [Suspect]
     Active Substance: NATALIZUMAB
     Route: 050
     Dates: start: 20150921
  5. TYSABRI [Suspect]
     Active Substance: NATALIZUMAB
     Route: 050
     Dates: start: 20161111
  6. TYSABRI [Suspect]
     Active Substance: NATALIZUMAB
     Route: 050
     Dates: start: 20150727
  7. TYSABRI [Suspect]
     Active Substance: NATALIZUMAB
     Indication: MULTIPLE SCLEROSIS
     Dosage: INFUSED EVERY 1 HOUR
     Route: 050
     Dates: start: 20141015, end: 201606
  8. TYSABRI [Suspect]
     Active Substance: NATALIZUMAB
     Route: 050
     Dates: start: 20151116
  9. TYSABRI [Suspect]
     Active Substance: NATALIZUMAB
     Route: 050
     Dates: start: 20160208
  10. TYSABRI [Suspect]
     Active Substance: NATALIZUMAB
     Route: 050
     Dates: start: 20160502

REACTIONS (29)
  - Cholestasis [Unknown]
  - Initial insomnia [Unknown]
  - Gamma-glutamyltransferase increased [Unknown]
  - Bronchitis [Unknown]
  - Hemianopia homonymous [Unknown]
  - Amenorrhoea [Unknown]
  - White matter lesion [Unknown]
  - Abscess [Unknown]
  - Pruritus [Unknown]
  - Encephalitis [Unknown]
  - Tympanic membrane disorder [Unknown]
  - Amenorrhoea [Unknown]
  - Depression [Unknown]
  - Somatic symptom disorder [Unknown]
  - Blood brain barrier defect [Recovered/Resolved]
  - Urinary tract infection [Unknown]
  - Nasopharyngitis [Unknown]
  - Central nervous system inflammation [Unknown]
  - Enterococcal infection [Unknown]
  - Hirsutism [Unknown]
  - Dyspepsia [Unknown]
  - Myopia [Unknown]
  - Dysphagia [Not Recovered/Not Resolved]
  - Menstruation delayed [Unknown]
  - Acute disseminated encephalomyelitis [Unknown]
  - Pharyngitis [Unknown]
  - Neurogenic bladder [Unknown]
  - Central nervous system lesion [Unknown]
  - Jaundice [Unknown]

NARRATIVE: CASE EVENT DATE: 201410
